FAERS Safety Report 17940266 (Version 1)
Quarter: 2020Q2

REPORT INFORMATION
  Report Type: Spontaneous
  Country: DE (occurrence: DE)
  Receive Date: 20200624
  Receipt Date: 20200624
  Transmission Date: 20200714
  Serious: Yes (Hospitalization)
  Sender: FDA-Public Use
  Company Number: DE-MYLANLABS-2020M1057613

PATIENT
  Age: 71 Year
  Sex: Female

DRUGS (8)
  1. THIAMIN                            /00056101/ [Concomitant]
     Dosage: UNK, QD 1-0-0-0
     Route: 048
  2. PYRIDOXINE [Concomitant]
     Active Substance: PYRIDOXINE
     Dosage: 100 MILLIGRAM, QD (100 MG, 1-0-0-0, TABLETTEN)
     Route: 048
  3. UNIZINK [Concomitant]
     Active Substance: AVOBENZONE\HOMOSALATE\OCTISALATE
     Dosage: 50 MILLIGRAM, QD  (50 MG, 1-0-0-0, TABLETTEN)
     Route: 048
  4. PROPRANOLOL [Suspect]
     Active Substance: PROPRANOLOL HYDROCHLORIDE
     Indication: PRODUCT USED FOR UNKNOWN INDICATION
     Dosage: 10 MILLIGRAM (10 MG, 1-0-1-0, TABLETTEN)
     Route: 048
  5. MELPERON [Concomitant]
     Active Substance: MELPERONE
     Dosage: 50 MILLIGRAM, QD 50 MG, 0-0-1-0, TABLETTEN)
     Route: 048
  6. ZOLPIDEM [Suspect]
     Active Substance: ZOLPIDEM TARTRATE
     Indication: PRODUCT USED FOR UNKNOWN INDICATION
     Dosage: 5 MILLIGRAM, QD (5 MG, 0-0-1-0, TABLETTEN)
     Route: 048
  7. COLECALCIFEROL [Concomitant]
     Active Substance: CHOLECALCIFEROL
     Dosage: 1000 IE, 1-0-0-0, TABLETTEN
     Route: 048
  8. NALOXONE HYDROCHLORIDE W/TILIDINE HYDROCHLORI [Suspect]
     Active Substance: NALOXONE HYDROCHLORIDE\TILIDINE HYDROCHLORIDE
     Indication: PRODUCT USED FOR UNKNOWN INDICATION
     Dosage: 4|50 MG, 1-1-1-0, TABLETTEN
     Route: 048

REACTIONS (4)
  - General physical health deterioration [Unknown]
  - Fall [Unknown]
  - Dizziness [Unknown]
  - Accidental overdose [Unknown]
